FAERS Safety Report 11930720 (Version 2)
Quarter: 2016Q1

REPORT INFORMATION
  Report Type: Other
  Country: GB (occurrence: US)
  Receive Date: 20160120
  Receipt Date: 20160121
  Transmission Date: 20160526
  Serious: Yes (Hospitalization, Disabling, Other)
  Sender: FDA-Public Use
  Company Number: US-CLARIS PHARMASERVICES-1046655

PATIENT
  Age: 25 Year
  Sex: Male

DRUGS (1)
  1. ONDANSETRON HYDROCHLORIDE. [Suspect]
     Active Substance: ONDANSETRON HYDROCHLORIDE
     Route: 048

REACTIONS (3)
  - Overdose [None]
  - Hypertension [None]
  - Posterior reversible encephalopathy syndrome [Recovering/Resolving]
